FAERS Safety Report 8900626 (Version 1)
Quarter: 2012Q4

REPORT INFORMATION
  Report Type: 
  Country: PT (occurrence: PT)
  Receive Date: 20121109
  Receipt Date: 20121109
  Transmission Date: 20130627
  Serious: Yes (Other)
  Sender: FDA-Public Use
  Company Number: PT-MYLANLABS-2012S1022420

PATIENT
  Age: 65 Year
  Sex: Female

DRUGS (2)
  1. ALPRAZOLAM [Suspect]
     Indication: ANXIETY
     Route: 048
  2. VALDOXAN [Concomitant]
     Indication: DEPRESSION

REACTIONS (2)
  - Depression [Unknown]
  - Panic attack [Unknown]
